FAERS Safety Report 18584717 (Version 1)
Quarter: 2020Q4

REPORT INFORMATION
  Report Type: Spontaneous
  Country: US (occurrence: US)
  Receive Date: 20201203
  Receipt Date: 20201203
  Transmission Date: 20210114
  Serious: Yes (Hospitalization)
  Sender: FDA-Public Use
  Company Number: None

PATIENT
  Age: 75 Year
  Sex: Female

DRUGS (1)
  1. REPATHA [Suspect]
     Active Substance: EVOLOCUMAB
     Indication: HYPERCHOLESTEROLAEMIA
     Dosage: OTHER FREQUENCY:EVERY OTHER WEEK;?
     Route: 058
     Dates: start: 20181227, end: 20201116

REACTIONS (3)
  - Pruritus [None]
  - Therapy cessation [None]
  - Syncope [None]
